FAERS Safety Report 7860163-2 (Version None)
Quarter: 2011Q4

REPORT INFORMATION
  Report Type: 
  Country: None (occurrence: None)
  Receive Date: 20111027
  Receipt Date: 20111019
  Transmission Date: 20120403
  Serious: Yes (Hospitalization)
  Sender: FDA-Public Use
  Company Number: US-GILEAD-2011-0044279

PATIENT

DRUGS (1)
  1. LETAIRIS [Suspect]
     Indication: PULMONARY ARTERIAL HYPERTENSION
     Dosage: 5 MG, UNK
     Route: 048
     Dates: start: 20110906

REACTIONS (5)
  - OEDEMA [None]
  - DIZZINESS [None]
  - DYSPNOEA [None]
  - CARDIAC FAILURE [None]
  - OXYGEN SATURATION DECREASED [None]
